FAERS Safety Report 11497155 (Version 2)
Quarter: 2015Q3

REPORT INFORMATION
  Report Type: Spontaneous
  Country: US (occurrence: US)
  Receive Date: 20150911
  Receipt Date: 20150918
  Transmission Date: 20151125
  Serious: Yes (Other)
  Sender: FDA-Public Use
  Company Number: US-TEVA-591737USA

PATIENT
  Age: 31 Year

DRUGS (4)
  1. VIMPAT [Interacting]
     Active Substance: LACOSAMIDE
     Indication: SEIZURE
     Dosage: DOSE AND FREQUENCY NOT PROVIDED
     Route: 065
  2. WARFARIN [Suspect]
     Active Substance: WARFARIN
     Indication: VENOUS THROMBOSIS
     Dosage: DOSE AND FREQUENCY NOT PROVIDED
     Route: 065
  3. KEPPRA [Interacting]
     Active Substance: LEVETIRACETAM
     Indication: SEIZURE
     Dosage: DOSE AND FREQUENCY NOT PROVIDED
     Route: 065
  4. TEGRETOL [Interacting]
     Active Substance: CARBAMAZEPINE
     Indication: SEIZURE
     Dosage: DOSE AND FREQUENCY NOT PROVIDED
     Route: 065

REACTIONS (10)
  - International normalised ratio fluctuation [Not Recovered/Not Resolved]
  - Nausea [Not Recovered/Not Resolved]
  - Fatigue [Not Recovered/Not Resolved]
  - Headache [Not Recovered/Not Resolved]
  - Drug interaction [Not Recovered/Not Resolved]
  - Confusional state [Not Recovered/Not Resolved]
  - Drug ineffective [Unknown]
  - Seizure [Not Recovered/Not Resolved]
  - Malaise [Not Recovered/Not Resolved]
  - Dizziness [Not Recovered/Not Resolved]
